FAERS Safety Report 16402533 (Version 1)
Quarter: 2019Q2

REPORT INFORMATION
  Report Type: Spontaneous
  Country: US (occurrence: US)
  Receive Date: 20190607
  Receipt Date: 20190607
  Transmission Date: 20190711
  Serious: Yes (Hospitalization)
  Sender: FDA-Public Use
  Company Number: US-TEVA-2019-US-1060684

PATIENT
  Age: 66 Year
  Sex: Female

DRUGS (1)
  1. CINQAIR [Suspect]
     Active Substance: RESLIZUMAB
     Dosage: 100MG/10ML
     Route: 042
     Dates: start: 20171026

REACTIONS (4)
  - Dysphonia [Unknown]
  - Ataxia [Unknown]
  - Arthralgia [Unknown]
  - Pharyngitis [Unknown]

NARRATIVE: CASE EVENT DATE: 201904
